FAERS Safety Report 4757239-5 (Version None)
Quarter: 2005Q3

REPORT INFORMATION
  Report Type: 
  Country: None (occurrence: None)
  Receive Date: 20050829
  Receipt Date: 20050816
  Transmission Date: 20060218
  Serious: Yes (Other)
  Sender: FDA-Public Use
  Company Number: 2005117148

PATIENT
  Age: 40 Year
  Sex: Male
  Weight: 92.9874 kg

DRUGS (3)
  1. ROGAINE [Suspect]
     Indication: ALOPECIA
     Dosage: 4-5 SPRAYS TWICE A MORNING, TOPICAL
     Route: 061
  2. FUROSEMIDE [Concomitant]
  3. ASCORBIC ACID [Concomitant]

REACTIONS (4)
  - HYPERTENSION [None]
  - OEDEMA PERIPHERAL [None]
  - PROTEIN TOTAL DECREASED [None]
  - RENAL DISORDER [None]
